FAERS Safety Report 9797571 (Version 4)
Quarter: 2014Q1

REPORT INFORMATION
  Report Type: Report from Study
  Country: BE (occurrence: BE)
  Receive Date: 20140106
  Receipt Date: 20140224
  Transmission Date: 20141002
  Serious: Yes (Hospitalization)
  Sender: FDA-Public Use
  Company Number: PHHY2013BE152140

PATIENT
  Age: 61 Year
  Sex: Female

DRUGS (8)
  1. FTY 720 [Suspect]
     Indication: MULTIPLE SCLEROSIS
     Dosage: 0.5 MG, QD
     Route: 048
     Dates: start: 20120612, end: 201312
  2. FTY 720 [Suspect]
     Dosage: 0.5 MG, QD
     Route: 048
  3. CLOTIAPINE [Interacting]
     Indication: PSYCHOMOTOR HYPERACTIVITY
     Dosage: 20 MG, ONCE/SINGLE
  4. AMINOPHENAZONE [Interacting]
     Indication: GAIT DISTURBANCE
     Dosage: 7.5 MG, BID
  5. AMINOPHENAZONE [Interacting]
     Indication: FATIGUE
  6. METFORMIN [Concomitant]
     Dosage: 850 MG, TID
  7. SIMVASTATIN [Concomitant]
     Dosage: 20 MG, QD
  8. ASPIRIN [Concomitant]
     Dosage: 100 MG, QD

REACTIONS (8)
  - Central nervous system lesion [Unknown]
  - Grand mal convulsion [Recovered/Resolved]
  - Abnormal behaviour [Recovered/Resolved]
  - Panic attack [Recovered/Resolved]
  - Anxiety [Recovered/Resolved]
  - Psychomotor hyperactivity [Recovered/Resolved]
  - Memory impairment [Recovered/Resolved]
  - Confusional state [Recovered/Resolved]
